FAERS Safety Report 9213585 (Version 3)
Quarter: 2013Q2

REPORT INFORMATION
  Report Type: Spontaneous
  Country: ZA (occurrence: ZA)
  Receive Date: 20130405
  Receipt Date: 20130529
  Transmission Date: 20140414
  Serious: Yes (Hospitalization)
  Sender: FDA-Public Use
  Company Number: ZA-NOVOPROD-374314

PATIENT
  Sex: Female
  Weight: 3 kg

DRUGS (5)
  1. NOVORAPID FLEXPEN [Suspect]
     Indication: GESTATIONAL DIABETES
     Dosage: 8 IU, TID
     Route: 064
     Dates: end: 20130307
  2. NOVORAPID FLEXPEN [Suspect]
     Indication: GESTATIONAL DIABETES
     Dosage: 8 IU, TID
     Route: 064
     Dates: end: 20130307
  3. LEVEMIR FLEXPEN [Suspect]
     Indication: GESTATIONAL DIABETES
     Dosage: 20 IU, QD
     Route: 064
     Dates: end: 20130307
  4. HYPOTEN                            /00353802/ [Concomitant]
     Route: 064
  5. OMEGA PLUS 3 6 9 [Concomitant]
     Route: 064

REACTIONS (2)
  - Dyspnoea [Recovered/Resolved]
  - Foetal exposure during pregnancy [Recovered/Resolved]
